FAERS Safety Report 20021963 (Version 3)
Quarter: 2021Q4

REPORT INFORMATION
  Report Type: Spontaneous
  Country: US (occurrence: US)
  Receive Date: 20211102
  Receipt Date: 20211123
  Transmission Date: 20220303
  Serious: No
  Sender: FDA-Public Use
  Company Number: US-UNITED THERAPEUTICS-UNT-2021-021611

PATIENT
  Sex: Male

DRUGS (6)
  1. TYVASO [Suspect]
     Active Substance: TREPROSTINIL
     Indication: Pulmonary arterial hypertension
     Dosage: UNK
     Dates: start: 20211016
  2. TYVASO [Suspect]
     Active Substance: TREPROSTINIL
     Dosage: 18 ?G, QID
     Dates: start: 202110
  3. TYVASO [Suspect]
     Active Substance: TREPROSTINIL
     Dosage: 6 ?G, QID
     Dates: start: 202110
  4. TYVASO [Suspect]
     Active Substance: TREPROSTINIL
     Dosage: 24 ?G, QID
     Dates: start: 2021
  5. TYVASO [Suspect]
     Active Substance: TREPROSTINIL
     Dosage: 12 ?G, QID
     Dates: start: 2021
  6. MACITENTAN [Concomitant]
     Active Substance: MACITENTAN
     Indication: Pulmonary arterial hypertension
     Dosage: 10 MG, QD (1 EVERY 1 DAY)
     Route: 048
     Dates: start: 20171011

REACTIONS (7)
  - Headache [Not Recovered/Not Resolved]
  - Insomnia [Unknown]
  - Dizziness [Unknown]
  - Cough [Unknown]
  - Feeling abnormal [Unknown]
  - Abdominal discomfort [Unknown]
  - Nausea [Unknown]

NARRATIVE: CASE EVENT DATE: 20210101
